FAERS Safety Report 9226256 (Version 1)
Quarter: 2013Q2

REPORT INFORMATION
  Report Type: Other
  Country: PL (occurrence: PL)
  Receive Date: 20130411
  Receipt Date: 20130411
  Transmission Date: 20140414
  Serious: Yes (Life-Threatening)
  Sender: FDA-Public Use
  Company Number: PL-WATSON-2013-06314

PATIENT
  Age: 75 Year
  Sex: Female
  Weight: 59 kg

DRUGS (1)
  1. CARBOPLATIN (UNKNOWN) [Suspect]
     Indication: OVARIAN CANCER
     Dosage: 292.56 MG, UNKNOWN
     Route: 042
     Dates: start: 20130304, end: 20130304

REACTIONS (7)
  - Gastrointestinal hypermotility [Recovered/Resolved]
  - Hypersensitivity [Recovered/Resolved]
  - Pruritus [Recovered/Resolved]
  - Erythema [Recovered/Resolved]
  - Asthenia [Recovered/Resolved]
  - Urticaria [Recovered/Resolved]
  - Face oedema [Recovered/Resolved]
